FAERS Safety Report 6674813-X (Version None)
Quarter: 2010Q2

REPORT INFORMATION
  Report Type: 
  Country: None (occurrence: None)
  Receive Date: 20100409
  Receipt Date: 20100329
  Transmission Date: 20101027
  Serious: Yes (Other)
  Sender: FDA-Public Use
  Company Number: FR-PURDUE-GBR-2010-0006360

PATIENT
  Sex: Female
  Weight: 65 kg

DRUGS (16)
  1. BLINDED NONE [Suspect]
     Indication: PAIN
     Dosage: 30 MG, BID
     Route: 048
     Dates: start: 20100326, end: 20100328
  2. BLINDED OXY CR TAB [Suspect]
     Indication: PAIN
     Dosage: 30 MG, BID
     Route: 048
     Dates: start: 20100326, end: 20100328
  3. BLINDED OXY CR TAB 10 MG [Suspect]
     Indication: PAIN
     Dosage: 30 MG, BID
     Route: 048
     Dates: start: 20100326, end: 20100328
  4. BLINDED OXY CR TAB 20 MG [Suspect]
     Indication: PAIN
     Dosage: 30 MG, BID
     Route: 048
     Dates: start: 20100326, end: 20100328
  5. BLINDED OXY CR TAB 40 MG [Suspect]
     Indication: PAIN
     Dosage: 30 MG, BID
     Route: 048
     Dates: start: 20100326, end: 20100328
  6. BLINDED OXY CR TAB 5 MG [Suspect]
     Indication: PAIN
     Dosage: 30 MG, BID
     Route: 048
     Dates: start: 20100326, end: 20100328
  7. BLINDED OXYCODONE HCL/NALOXONE HCL CR TAB [Suspect]
     Indication: PAIN
     Dosage: 30 MG, BID
     Route: 048
     Dates: start: 20100326, end: 20100328
  8. BLINDED OXYCODONE HCL/NALOXONE HCL CR TAB 10/5MG [Suspect]
     Indication: PAIN
     Dosage: 30 MG, BID
     Route: 048
     Dates: start: 20100326, end: 20100328
  9. BLINDED OXYCODONE HCL/NALOXONE HCL CR TAB20/10MG [Suspect]
     Indication: PAIN
     Dosage: 30 MG, BID
     Route: 048
     Dates: start: 20100326, end: 20100328
  10. BLINDED OXYCODONE HCL/NALOXONE HCL CR TAB40/20MG [Suspect]
     Indication: PAIN
     Dosage: 30 MG, BID
     Route: 048
     Dates: start: 20100326, end: 20100328
  11. BLINDED OXYCODONE HCL/NALOXONE HCL CRTAB 5/2.5MG [Suspect]
     Indication: PAIN
     Dosage: 30 MG, BID
     Route: 048
     Dates: start: 20100326, end: 20100328
  12. OXYNORM CAPSULES [Suspect]
     Indication: PAIN
     Dosage: 10 MG, PRN
     Route: 048
     Dates: start: 20100327, end: 20100328
  13. SKENAN [Concomitant]
     Indication: PAIN
     Dosage: 60 MG, BID
     Route: 048
     Dates: start: 20100328
  14. SKENAN [Concomitant]
     Dosage: 60 MG, BID
     Route: 048
     Dates: end: 20100326
  15. MORPHINE SULFATE [Concomitant]
     Indication: PAIN
     Dosage: 10 MG, UNK
     Route: 048
     Dates: start: 20100328
  16. MORPHINE SULFATE [Concomitant]
     Dosage: 10 MG, PRN
     Route: 048
     Dates: end: 20100325

REACTIONS (1)
  - BLOOD HUMAN CHORIONIC GONADOTROPIN POSITIVE [None]
